FAERS Safety Report 20664188 (Version 1)
Quarter: 2022Q2

REPORT INFORMATION
  Report Type: Spontaneous
  Country: US (occurrence: None)
  Receive Date: 20220401
  Receipt Date: 20220401
  Transmission Date: 20220720
  Serious: No
  Sender: FDA-Public Use
  Company Number: None

PATIENT
  Age: 33 Year
  Sex: Female
  Weight: 58.95 kg

DRUGS (1)
  1. NITROFURANTOIN MONO [Suspect]
     Active Substance: NITROFURANTOIN\NITROFURANTOIN MONOHYDRATE
     Indication: Urinary tract infection
     Dosage: 10 CAPSULES TWICE A DAY ORAL?
     Route: 048
     Dates: start: 20220329, end: 20220401

REACTIONS (15)
  - Headache [None]
  - Chills [None]
  - Pain [None]
  - Nausea [None]
  - Decreased appetite [None]
  - Respiratory rate increased [None]
  - Dizziness [None]
  - Fatigue [None]
  - Arthralgia [None]
  - Feeling abnormal [None]
  - Pain in extremity [None]
  - Pain in extremity [None]
  - Tremor [None]
  - Pyrexia [None]
  - Feeling abnormal [None]

NARRATIVE: CASE EVENT DATE: 20220330
